FAERS Safety Report 9638254 (Version 1)
Quarter: 2013Q4

REPORT INFORMATION
  Report Type: Spontaneous
  Country: IT (occurrence: IT)
  Receive Date: 20131022
  Receipt Date: 20131022
  Transmission Date: 20140711
  Serious: Yes (Congenital Anomaly)
  Sender: FDA-Public Use
  Company Number: IT-PFIZER INC-2013299786

PATIENT
  Sex: Female
  Weight: 2 kg

DRUGS (3)
  1. EFEXOR ER [Suspect]
     Dosage: 75 MG, DAILY
     Route: 064
     Dates: end: 2013
  2. ALDOMET [Concomitant]
     Dosage: UNK
  3. ISOPTIN [Concomitant]
     Dosage: UNK

REACTIONS (5)
  - Maternal exposure during pregnancy [Recovering/Resolving]
  - Hypotonia neonatal [Recovering/Resolving]
  - Feeding disorder neonatal [Recovering/Resolving]
  - Eye movement disorder [Recovering/Resolving]
  - Neonatal behavioural syndrome [Recovering/Resolving]
